FAERS Safety Report 15524942 (Version 2)
Quarter: 2018Q4

REPORT INFORMATION
  Report Type: Report from Study
  Country: GB (occurrence: GB)
  Receive Date: 20181019
  Receipt Date: 20181108
  Transmission Date: 20190205
  Serious: Yes (Other)
  Sender: FDA-Public Use
  Company Number: PHHY2018GB132450

PATIENT
  Sex: Female

DRUGS (1)
  1. ERELZI [Suspect]
     Active Substance: ETANERCEPT-SZZS
     Indication: RHEUMATOID ARTHRITIS
     Dosage: 50 MG, QW, PRE FILLED PEN
     Route: 058
     Dates: start: 20180725

REACTIONS (2)
  - Lower respiratory tract infection [Recovered/Resolved]
  - Rheumatoid arthritis [Unknown]
